FAERS Safety Report 24782258 (Version 1)
Quarter: 2024Q4

REPORT INFORMATION
  Report Type: Spontaneous
  Country: US (occurrence: US)
  Receive Date: 20241227
  Receipt Date: 20241227
  Transmission Date: 20250115
  Serious: Yes (Other)
  Sender: UNKNOWN
  Company Number: US-KOANAAP-SML-US-2024-01281

PATIENT
  Age: 43 Year
  Sex: Male

DRUGS (2)
  1. AZACITIDINE [Suspect]
     Active Substance: AZACITIDINE
     Indication: Adult T-cell lymphoma/leukaemia
     Route: 065
  2. ROMIDEPSIN [Suspect]
     Active Substance: ROMIDEPSIN
     Indication: Adult T-cell lymphoma/leukaemia
     Route: 065

REACTIONS (1)
  - Therapy partial responder [Unknown]
